FAERS Safety Report 24411012 (Version 1)
Quarter: 2024Q4

REPORT INFORMATION
  Report Type: Report from Study
  Country: US (occurrence: US)
  Receive Date: 20241008
  Receipt Date: 20241008
  Transmission Date: 20250114
  Serious: Yes (Other)
  Sender: BAYER
  Company Number: US-BAYER-2024A132207

PATIENT
  Age: 45 Year
  Sex: Female

DRUGS (5)
  1. ADEMPAS [Suspect]
     Active Substance: RIOCIGUAT
     Indication: Pulmonary arterial hypertension
  2. ADEMPAS [Suspect]
     Active Substance: RIOCIGUAT
     Indication: Pulmonary arterial hypertension
     Dosage: 2.5 MG, TID
     Route: 048
     Dates: start: 201803
  3. REMODULIN [Suspect]
     Active Substance: TREPROSTINIL
     Dosage: UNK
     Dates: start: 202309
  4. SOTATERCEPT [Concomitant]
     Active Substance: SOTATERCEPT
  5. OPSUMIT [Concomitant]
     Active Substance: MACITENTAN

REACTIONS (4)
  - Breast pain [None]
  - Erythema [None]
  - Contusion [None]
  - Injection site pain [None]
